FAERS Safety Report 7643102-9 (Version None)
Quarter: 2011Q3

REPORT INFORMATION
  Report Type: 
  Country: None (occurrence: None)
  Receive Date: 20110728
  Receipt Date: 20110727
  Transmission Date: 20111222
  Serious: Yes (Hospitalization, Other)
  Sender: FDA-Public Use
  Company Number: US-BRISTOL-MYERS SQUIBB COMPANY-15929383

PATIENT
  Age: 69 Year
  Sex: Female

DRUGS (1)
  1. COUMADIN [Suspect]
     Indication: DEEP VEIN THROMBOSIS
     Dosage: THERAPY FROM:6 YRS ALSO 2MG DAILY

REACTIONS (2)
  - GASTRIC HAEMORRHAGE [None]
  - PULMONARY EMBOLISM [None]
